FAERS Safety Report 4500273-0 (Version None)
Quarter: 2004Q4

REPORT INFORMATION
  Report Type: 
  Country: None (occurrence: None)
  Receive Date: 20041109
  Receipt Date: 20041026
  Transmission Date: 20050328
  Serious: Yes (Hospitalization)
  Sender: FDA-Public Use
  Company Number: 2004241194US

PATIENT
  Age: 22 Year
  Sex: Female

DRUGS (4)
  1. CAMPTOSAR [Suspect]
     Indication: GLIOBLASTOMA MULTIFORME
     Dosage: 225 MG, WEEKLY, IV
     Route: 042
     Dates: end: 20040909
  2. COMPARATOR-THALIDOMIDE (THALIDOMIDE) CAPSULE [Suspect]
     Indication: GLIOBLASTOMA MULTIFORME
     Dosage: 400 MG, QD, ORAL
     Route: 048
  3. COUMADIN [Concomitant]
  4. LEVETIRACETAM [Concomitant]

REACTIONS (2)
  - CONVULSION [None]
  - TREATMENT NONCOMPLIANCE [None]
